FAERS Safety Report 26105442 (Version 1)
Quarter: 2025Q4

REPORT INFORMATION
  Report Type: Report from Study
  Country: US (occurrence: US)
  Receive Date: 20251201
  Receipt Date: 20251201
  Transmission Date: 20260118
  Serious: Yes (Other)
  Sender: ABBVIE
  Company Number: US-ABBVIE-6566657

PATIENT
  Age: 50 Year
  Sex: Female

DRUGS (1)
  1. RINVOQ [Suspect]
     Active Substance: UPADACITINIB
     Indication: Crohn^s disease
     Route: 048
     Dates: start: 20241213, end: 202511

REACTIONS (4)
  - Small intestinal resection [Recovering/Resolving]
  - Impaired healing [Unknown]
  - Pain [Not Recovered/Not Resolved]
  - Colectomy [Recovering/Resolving]

NARRATIVE: CASE EVENT DATE: 20251101
